FAERS Safety Report 19111026 (Version 1)
Quarter: 2021Q2

REPORT INFORMATION
  Report Type: Spontaneous
  Country: US (occurrence: US)
  Receive Date: 20210408
  Receipt Date: 20210408
  Transmission Date: 20210717
  Serious: Yes (Other)
  Sender: FDA-Public Use
  Company Number: None

PATIENT
  Age: 57 Year
  Sex: Male

DRUGS (9)
  1. COSENTYX [Suspect]
     Active Substance: SECUKINUMAB
     Indication: PSORIASIS
     Dosage: FREQUENCY: EVERY 4 WEEKS
     Route: 058
     Dates: start: 20200421
  2. AMLODIPINE [Concomitant]
     Active Substance: AMLODIPINE BESYLATE
     Dates: start: 20201207
  3. SILDENAFIL. [Concomitant]
     Active Substance: SILDENAFIL
     Dates: start: 20210111
  4. OMEPRAZOLE. [Concomitant]
     Active Substance: OMEPRAZOLE
     Dates: start: 20201101
  5. ELIQUIS [Concomitant]
     Active Substance: APIXABAN
  6. COSENTYX [Suspect]
     Active Substance: SECUKINUMAB
     Indication: DERMATITIS
     Dosage: FREQUENCY: EVERY 4 WEEKS
     Route: 058
     Dates: start: 20200421
  7. LATANOPROST. [Concomitant]
     Active Substance: LATANOPROST
     Dates: start: 20201210
  8. CLOBETASOL [Concomitant]
     Active Substance: CLOBETASOL
     Dates: start: 20210218
  9. TRAZODON E [Concomitant]
     Dates: start: 20201015

REACTIONS (1)
  - Rash [None]

NARRATIVE: CASE EVENT DATE: 20210405
